FAERS Safety Report 8439101-X (Version None)
Quarter: 2012Q2

REPORT INFORMATION
  Report Type: 
  Country: None (occurrence: None)
  Receive Date: 20120615
  Receipt Date: 20120606
  Transmission Date: 20120825
  Serious: Yes (Other)
  Sender: FDA-Public Use
  Company Number: US-BAYER-2012-057303

PATIENT
  Age: 23 Year
  Sex: Male

DRUGS (4)
  1. ALEVE (CAPLET) [Suspect]
     Indication: INFLUENZA LIKE ILLNESS
     Dosage: UNK
  2. REBIF [Suspect]
     Indication: MULTIPLE SCLEROSIS
     Dosage: 44 ?G, TIW
     Route: 058
     Dates: start: 20100416
  3. PROPRANOLOL [Concomitant]
     Indication: MIGRAINE
     Dosage: UNK
  4. PRILOSEC [Concomitant]
     Dosage: UNK

REACTIONS (2)
  - ANAEMIA [None]
  - GASTRIC HAEMORRHAGE [None]
